FAERS Safety Report 18703559 (Version 1)
Quarter: 2021Q1

REPORT INFORMATION
  Report Type: Spontaneous
  Country: FR (occurrence: FR)
  Receive Date: 20210105
  Receipt Date: 20210105
  Transmission Date: 20210419
  Serious: Yes (Life-Threatening)
  Sender: FDA-Public Use
  Company Number: FR-TEVA-2020-FR-1864373

PATIENT
  Age: 67 Year
  Sex: Male
  Weight: 82 kg

DRUGS (5)
  1. PANTOPRAZOLE [Concomitant]
     Active Substance: PANTOPRAZOLE
  2. BISOPROLOL (HEMIFUMARATE DE) [Concomitant]
     Active Substance: BISOPROLOL FUMARATE
  3. KARDEGIC [Suspect]
     Active Substance: ASPIRIN DL-LYSINE
     Indication: PROPHYLAXIS
     Route: 048
     Dates: end: 20201207
  4. CLOPIDOGREL (BESILATE DE) [Suspect]
     Active Substance: CLOPIDOGREL BESILATE
     Indication: PROPHYLAXIS
     Route: 048
     Dates: start: 202009, end: 20201204
  5. RAMIPRIL. [Concomitant]
     Active Substance: RAMIPRIL

REACTIONS (2)
  - Shock haemorrhagic [Recovered/Resolved with Sequelae]
  - Haemothorax [Recovered/Resolved with Sequelae]

NARRATIVE: CASE EVENT DATE: 20201202
